FAERS Safety Report 21534069 (Version 2)
Quarter: 2023Q4

REPORT INFORMATION
  Report Type: Spontaneous
  Country: US (occurrence: US)
  Receive Date: 20221101
  Receipt Date: 20231106
  Transmission Date: 20240110
  Serious: No
  Sender: FDA-Public Use
  Company Number: US-PARATEK PHARMACEUTICALS, INC.-2022PTK00313

PATIENT
  Age: 87 Year
  Sex: Female
  Weight: 101.13 kg

DRUGS (2)
  1. NUZYRA [Suspect]
     Active Substance: OMADACYCLINE
     Indication: Localised infection
     Dosage: 150 MG, 1X/DAY
     Route: 048
     Dates: start: 20220924, end: 20220927
  2. UNSPECIFIED INGREDIENT [Suspect]
     Active Substance: UNSPECIFIED INGREDIENT
     Indication: Urinary tract infection
     Dosage: UNK
     Dates: end: 2022

REACTIONS (10)
  - Malaise [Recovered/Resolved]
  - Feeling cold [Recovered/Resolved]
  - Cardiovascular disorder [Recovered/Resolved]
  - Frequent bowel movements [Recovered/Resolved]
  - Diarrhoea [Recovered/Resolved]
  - Vomiting [Recovered/Resolved]
  - Nausea [Recovered/Resolved]
  - Headache [Recovered/Resolved]
  - Off label use [Recovered/Resolved]
  - Incorrect dose administered [Recovered/Resolved]

NARRATIVE: CASE EVENT DATE: 20220901
